FAERS Safety Report 12890230 (Version 1)
Quarter: 2016Q4

REPORT INFORMATION
  Report Type: Other
  Country: IT (occurrence: IT)
  Receive Date: 20161027
  Receipt Date: 20161027
  Transmission Date: 20170207
  Serious: Yes (Hospitalization)
  Sender: FDA-Public Use
  Company Number: IT-TAKEDA-2016TEU005396

PATIENT
  Age: 92 Year
  Sex: Female

DRUGS (10)
  1. TANDEMACT [Suspect]
     Active Substance: GLIMEPIRIDE\PIOGLITAZONE HYDROCHLORIDE
     Indication: TYPE 2 DIABETES MELLITUS
     Dosage: 30MG/4MG, QD
     Route: 048
     Dates: start: 20160101, end: 20160912
  2. ZOTON [Concomitant]
     Active Substance: LANSOPRAZOLE
     Dosage: UNK
     Route: 048
  3. NORVASC [Concomitant]
     Active Substance: AMLODIPINE BESYLATE
     Dosage: UNK
     Route: 048
  4. ASCRIPTIN [Concomitant]
     Active Substance: ASPIRIN
     Dosage: UNK
     Route: 048
  5. DILATREND [Concomitant]
     Active Substance: CARVEDILOL
     Dosage: UNK
     Route: 048
  6. ENAPREN [Concomitant]
     Active Substance: ENALAPRIL MALEATE
     Dosage: UNK
     Route: 048
  7. LASIX [Concomitant]
     Active Substance: FUROSEMIDE
     Dosage: UNK
     Route: 048
  8. NORMIX [Concomitant]
     Active Substance: RIFAXIMIN
     Dosage: UNK
     Route: 048
  9. DUROGESIC [Concomitant]
     Active Substance: FENTANYL
     Dosage: UNK
     Route: 048
  10. ISMO [Concomitant]
     Active Substance: ISOSORBIDE MONONITRATE
     Route: 048

REACTIONS (4)
  - Condition aggravated [Unknown]
  - Diabetic metabolic decompensation [Unknown]
  - Sopor [Unknown]
  - Gravitational oedema [Unknown]

NARRATIVE: CASE EVENT DATE: 20160912
